FAERS Safety Report 9225000 (Version 1)
Quarter: 2013Q1

REPORT INFORMATION
  Report Type: Spontaneous
  Country: US (occurrence: None)
  Receive Date: 20120912
  Receipt Date: 20120912
  Transmission Date: 20140127
  Serious: No
  Sender: FDA-Public Use
  Company Number: 2012SP025070

PATIENT
  Age: 37 Year
  Sex: Female

DRUGS (3)
  1. VICTRELIS [Suspect]
     Indication: HEPATITIS C
     Route: 048
     Dates: start: 20120214, end: 20120509
  2. RIBAVARIN [Suspect]
     Indication: PRODUCT USED FOR UNKNOWN INDICATION
     Dates: start: 20120105
  3. PEGASYS [Suspect]
     Indication: PRODUCT USED FOR UNKNOWN INDICATION
     Dates: start: 20120105

REACTIONS (10)
  - Attention deficit/hyperactivity disorder [None]
  - Haemorrhoids [None]
  - Lethargy [None]
  - Alopecia [None]
  - Rash [None]
  - Anxiety [None]
  - Fatigue [None]
  - Nausea [None]
  - Pruritus [None]
  - Disturbance in attention [None]
